FAERS Safety Report 9225902 (Version 1)
Quarter: 2013Q2

REPORT INFORMATION
  Report Type: Report from Study
  Country: CA (occurrence: CA)
  Receive Date: 20130411
  Receipt Date: 20130411
  Transmission Date: 20140414
  Serious: Yes (Hospitalization)
  Sender: FDA-Public Use
  Company Number: CA-JNJFOC-20130402977

PATIENT
  Sex: Male
  Weight: 140 kg

DRUGS (10)
  1. REMICADE [Suspect]
     Indication: CROHN^S DISEASE
     Route: 042
     Dates: start: 20081118
  2. IMURAN [Concomitant]
     Route: 065
  3. CIPRALEX [Concomitant]
     Route: 065
  4. SIMVASTATIN [Concomitant]
     Route: 065
  5. NOVASEN [Concomitant]
     Route: 065
  6. PLAVIX [Concomitant]
     Route: 065
  7. TRAZODONE [Concomitant]
     Route: 065
  8. RABEPRAZOLE [Concomitant]
     Route: 065
  9. RAMIPRIL [Concomitant]
     Route: 065
  10. SALOFALK [Concomitant]
     Route: 065

REACTIONS (1)
  - Insomnia [Unknown]
